FAERS Safety Report 11621066 (Version 1)
Quarter: 2015Q4

REPORT INFORMATION
  Report Type: Report from Study
  Country: US (occurrence: US)
  Receive Date: 20151012
  Receipt Date: 20151012
  Transmission Date: 20160304
  Serious: No
  Sender: FDA-Public Use
  Company Number: US-CELGENEUS-USA-2015085460

PATIENT

DRUGS (1)
  1. REVLIMID [Suspect]
     Active Substance: LENALIDOMIDE
     Indication: PLASMA CELL MYELOMA
     Dosage: 10-15 MG
     Route: 048

REACTIONS (9)
  - White blood cell count decreased [Recovering/Resolving]
  - Anaemia [Unknown]
  - Fatigue [Unknown]
  - Platelet count decreased [Recovering/Resolving]
  - Diarrhoea [Recovering/Resolving]
  - Bone marrow failure [Unknown]
  - Blood testosterone abnormal [Unknown]
  - Red blood cell count decreased [Recovering/Resolving]
  - Muscle spasms [Recovered/Resolved]
